FAERS Safety Report 8784366 (Version 1)
Quarter: 2012Q4

REPORT INFORMATION
  Report Type: 
  Country: US (occurrence: US)
  Receive Date: 20120913
  Receipt Date: 20120913
  Transmission Date: 20130627
  Serious: No
  Sender: FDA-Public Use
  Company Number: US-ASTRAZENECA-2012SE64613

PATIENT
  Age: 44 Year
  Sex: Female
  Weight: 52.2 kg

DRUGS (2)
  1. SEROQUEL XR [Suspect]
     Indication: INSOMNIA
     Route: 048
  2. SYNTHROID [Concomitant]
     Indication: THYROID THERAPY

REACTIONS (2)
  - Nausea [Unknown]
  - Off label use [Unknown]
